FAERS Safety Report 9507738 (Version 1)
Quarter: 2013Q3

REPORT INFORMATION
  Report Type: Spontaneous
  Country: US (occurrence: None)
  Receive Date: 20130906
  Receipt Date: 20130906
  Transmission Date: 20140515
  Serious: No
  Sender: FDA-Public Use
  Company Number: None

PATIENT
  Age: 58 Year
  Sex: Male

DRUGS (1)
  1. JAKAFI [Suspect]
     Dosage: 10MG BID PO
     Route: 048
     Dates: start: 20130516

REACTIONS (1)
  - Gastric disorder [None]
